FAERS Safety Report 17920256 (Version 2)
Quarter: 2020Q3

REPORT INFORMATION
  Report Type: Spontaneous
  Country: US (occurrence: US)
  Receive Date: 20200620
  Receipt Date: 20200814
  Transmission Date: 20201103
  Serious: No
  Sender: FDA-Public Use
  Company Number: US-ASTRAZENECA-2020SE75668

PATIENT
  Age: 56 Year
  Sex: Female
  Weight: 85.3 kg

DRUGS (2)
  1. METFORMIN HYDROCHLORIDE. [Concomitant]
     Active Substance: METFORMIN HYDROCHLORIDE
     Indication: TYPE 2 DIABETES MELLITUS
     Route: 048
     Dates: start: 2015
  2. BYDUREON [Suspect]
     Active Substance: EXENATIDE
     Indication: TYPE 2 DIABETES MELLITUS
     Route: 058
     Dates: start: 202004

REACTIONS (5)
  - Device leakage [Unknown]
  - Wrong technique in device usage process [Unknown]
  - Weight decreased [Unknown]
  - Product dose omission issue [Unknown]
  - Limb mass [Not Recovered/Not Resolved]

NARRATIVE: CASE EVENT DATE: 2020
